FAERS Safety Report 24684091 (Version 1)
Quarter: 2024Q4

REPORT INFORMATION
  Report Type: Other
  Country: AU (occurrence: AU)
  Receive Date: 20241202
  Receipt Date: 20241202
  Transmission Date: 20250114
  Serious: Yes (Hospitalization, Disabling, Other)
  Sender: DEXCEL
  Company Number: AU-DEXPHARM-2024-4655

PATIENT
  Age: 28 Year
  Sex: Male

DRUGS (1)
  1. DEXAMETHASONE [Suspect]
     Active Substance: DEXAMETHASONE
     Dosage: HIGH DOSE DEXAMETHASONE (6 MG THREE TIMES DAILY WHICH WAS TAPERED OVER 5 WEEKS

REACTIONS (2)
  - Osteonecrosis [Recovered/Resolved with Sequelae]
  - Respiratory tract infection [Recovered/Resolved]
